APPROVED DRUG PRODUCT: ENTRESTO SPRINKLE
Active Ingredient: SACUBITRIL; VALSARTAN
Strength: 15MG;16MG
Dosage Form/Route: CAPSULE, PELLETS;ORAL
Application: N218591 | Product #002
Applicant: NOVARTIS PHARMACEUTICALS CORP
Approved: Apr 12, 2024 | RLD: Yes | RS: Yes | Type: RX

PATENTS:
Patent 10722471 | Expires: Feb 2, 2037
Patent 9388134 | Expires: Nov 8, 2026
Patent 8877938 | Expires: May 27, 2027